FAERS Safety Report 9048918 (Version 1)
Quarter: 2013Q1

REPORT INFORMATION
  Report Type: Spontaneous
  Country: US (occurrence: None)
  Receive Date: 20130130
  Receipt Date: 20130130
  Transmission Date: 20140127
  Serious: Yes (Disabling)
  Sender: FDA-Public Use
  Company Number: None

PATIENT
  Sex: Female
  Weight: 55.5 kg

DRUGS (2)
  1. GOLYTELY [Suspect]
     Indication: BOWEL PREPARATION
     Dates: start: 20110808
  2. GOLYTELY [Suspect]
     Indication: COLONOSCOPY
     Dates: start: 20110808

REACTIONS (7)
  - Product taste abnormal [None]
  - Product quality issue [None]
  - Cough [None]
  - Weight decreased [None]
  - Night sweats [None]
  - Ear infection [None]
  - Bronchiectasis [None]
